FAERS Safety Report 6591282-9 (Version None)
Quarter: 2010Q1

REPORT INFORMATION
  Report Type: 
  Country: None (occurrence: None)
  Receive Date: 20100219
  Receipt Date: 20100209
  Transmission Date: 20100710
  Serious: Yes (Other)
  Sender: FDA-Public Use
  Company Number: US-PFIZER INC-2010017427

PATIENT
  Sex: Male

DRUGS (6)
  1. VERAPAMIL HCL [Suspect]
     Dosage: UNK
  2. ENALAPRIL MALEATE [Suspect]
  3. ASPIRIN [Suspect]
  4. NOVOLOG [Suspect]
     Dosage: 20 IU, DAILY
  5. ZOCOR [Suspect]
  6. PROPRANOLOL [Suspect]

REACTIONS (1)
  - BLOOD GLUCOSE INCREASED [None]
